FAERS Safety Report 20800714 (Version 1)
Quarter: 2022Q2

REPORT INFORMATION
  Report Type: Spontaneous
  Country: US (occurrence: US)
  Receive Date: 20220509
  Receipt Date: 20220509
  Transmission Date: 20220720
  Serious: Yes (Death, Life-Threatening, Hospitalization, Other)
  Sender: FDA-Public Use
  Company Number: US-BRISTOL-MYERS SQUIBB COMPANY-2022-032286

PATIENT
  Age: 76 Year
  Sex: Male

DRUGS (3)
  1. REVLIMID [Suspect]
     Active Substance: LENALIDOMIDE
     Indication: Plasma cell myeloma
     Route: 048
     Dates: start: 20170908, end: 20220306
  2. WARFARIN [Concomitant]
     Active Substance: WARFARIN
     Indication: Atrial fibrillation
     Route: 065
  3. AMIODARONE [Concomitant]
     Active Substance: AMIODARONE
     Indication: Atrial fibrillation
     Route: 065

REACTIONS (6)
  - Renal tubular necrosis [Fatal]
  - Acute respiratory failure [Fatal]
  - Pneumonia [Fatal]
  - Cardiac arrest [Fatal]
  - Lumbar spinal stenosis [Unknown]
  - Myelopathy [Unknown]

NARRATIVE: CASE EVENT DATE: 20220323
